FAERS Safety Report 6189037-2 (Version None)
Quarter: 2009Q2

REPORT INFORMATION
  Report Type: 
  Country: None (occurrence: None)
  Receive Date: 20090513
  Receipt Date: 20090505
  Transmission Date: 20091009
  Serious: Yes (Hospitalization, Other)
  Sender: FDA-Public Use
  Company Number: GB-PFIZER INC-2009194116

PATIENT
  Age: 40 Year

DRUGS (1)
  1. CHAMPIX [Suspect]
     Indication: SMOKING CESSATION THERAPY
     Dosage: 1 MG, 2X/DAY
     Route: 048
     Dates: start: 20090304, end: 20090331

REACTIONS (4)
  - BRAIN OEDEMA [None]
  - CONVULSION [None]
  - COUGH [None]
  - INTRACRANIAL PRESSURE INCREASED [None]
